FAERS Safety Report 4528074-8 (Version None)
Quarter: 2004Q4

REPORT INFORMATION
  Report Type: 
  Country: None (occurrence: None)
  Receive Date: 20041123
  Receipt Date: 20040611
  Transmission Date: 20050328
  Serious: Yes (Other)
  Sender: FDA-Public Use
  Company Number: 2004039223

PATIENT
  Age: 49 Year
  Sex: Male
  Weight: 82.5547 kg

DRUGS (1)
  1. LIPITOR [Suspect]
     Indication: BLOOD CHOLESTEROL INCREASED
     Dosage: 10 MG (10 MG, 1 IN 1 D), ORAL
     Route: 048
     Dates: start: 20010201, end: 20040401

REACTIONS (7)
  - AMNESIA [None]
  - COGNITIVE DISORDER [None]
  - GAIT DISTURBANCE [None]
  - HEADACHE [None]
  - LYME DISEASE [None]
  - MUSCLE CRAMP [None]
  - NECK PAIN [None]
